FAERS Safety Report 8555960 (Version 2)
Quarter: 2012Q4

REPORT INFORMATION
  Report Type: 
  Country: US (occurrence: US)
  Receive Date: 20120510
  Receipt Date: 20120927
  Transmission Date: 20130627
  Serious: Yes (Hospitalization)
  Sender: FDA-Public Use
  Company Number: US-BAYER-2012-044444

PATIENT
  Age: 16 Year
  Sex: Female
  Weight: 72.56 kg

DRUGS (6)
  1. YAZ [Suspect]
     Indication: MENORRHAGIA
     Dosage: UNK
     Dates: start: 200810, end: 201104
  2. ALEVE [Concomitant]
     Indication: ANALGESIC THERAPY
     Dosage: Used in the 20 day period before the onset of injuries
  3. ADVIL [Concomitant]
     Indication: ANALGESIC THERAPY
     Dosage: Used in the 20 day period before the onset of injuries
  4. IBUPROFEN [Concomitant]
     Indication: MIGRAINE
     Dosage: UNK UNK, PRN
     Dates: start: 200710
  5. IBUPROFEN [Concomitant]
     Indication: PAIN
  6. LOESTRIN FE [Concomitant]

REACTIONS (9)
  - Gallbladder disorder [None]
  - Biliary dyskinesia [Recovered/Resolved]
  - Injury [None]
  - Pain [None]
  - Abdominal pain [None]
  - Emotional distress [None]
  - General physical health deterioration [None]
  - Anxiety [None]
  - Oedema peripheral [None]
